FAERS Safety Report 12996555 (Version 1)
Quarter: 2016Q4

REPORT INFORMATION
  Report Type: Spontaneous
  Country: GB (occurrence: GB)
  Receive Date: 20161204
  Receipt Date: 20161204
  Transmission Date: 20170207
  Serious: Yes (Other)
  Sender: FDA-Public Use
  Company Number: GB-GLAXOSMITHKLINE-GB2016GSK177335

PATIENT
  Age: 41 Year
  Sex: Female

DRUGS (3)
  1. BECLOMETHASONE [Suspect]
     Active Substance: BECLOMETHASONE
     Indication: PRODUCT USED FOR UNKNOWN INDICATION
  2. FUROSEMIDE. [Concomitant]
     Active Substance: FUROSEMIDE
     Indication: PRODUCT USED FOR UNKNOWN INDICATION
  3. NIFEDIPINE. [Suspect]
     Active Substance: NIFEDIPINE
     Indication: PRODUCT USED FOR UNKNOWN INDICATION

REACTIONS (16)
  - Hypoxia [Recovering/Resolving]
  - Pulmonary embolism [Recovering/Resolving]
  - Oedema [Recovering/Resolving]
  - Pulmonary oedema [Recovering/Resolving]
  - Ejection fraction abnormal [Recovering/Resolving]
  - Pleural effusion [Recovering/Resolving]
  - Mitral valve incompetence [Recovering/Resolving]
  - Condition aggravated [Recovering/Resolving]
  - Cardiac failure congestive [Recovering/Resolving]
  - Live birth [Unknown]
  - Exposure during pregnancy [Unknown]
  - Peripartum cardiomyopathy [Recovering/Resolving]
  - Hypotension [Recovering/Resolving]
  - Cardiomegaly [Recovering/Resolving]
  - Ventricular hypertrophy [Recovering/Resolving]
  - Twin pregnancy [Unknown]
